FAERS Safety Report 9421019 (Version 8)
Quarter: 2013Q4

REPORT INFORMATION
  Report Type: Spontaneous
  Country: US (occurrence: US)
  Receive Date: 20130725
  Receipt Date: 20131113
  Transmission Date: 20140711
  Serious: Yes (Hospitalization, Other)
  Sender: FDA-Public Use
  Company Number: US-VERTEX PHARMACEUTICALS INC-2013-008233

PATIENT
  Age: 56 Year
  Sex: Male
  Weight: 80.27 kg

DRUGS (6)
  1. INCIVEK [Suspect]
     Indication: HEPATITIS C
     Dosage: 750 MG, TID
     Route: 048
     Dates: start: 20130723, end: 20130823
  2. INCIVEK [Suspect]
     Dosage: 750 MG, TID
     Route: 048
     Dates: start: 20130824, end: 20130911
  3. COPEGUS [Suspect]
     Indication: HEPATITIS C
     Dosage: 600MG IN MORNING, 400MG IN EVENING, DAILY
     Route: 048
     Dates: start: 20130723, end: 20130823
  4. COPEGUS [Suspect]
     Dosage: 400 MG, BID
     Route: 048
     Dates: start: 20130824, end: 20130911
  5. PEGASYS [Suspect]
     Indication: HEPATITIS C
     Dosage: 180 ?G, QW
     Route: 058
     Dates: start: 20130724, end: 20130823
  6. PEGASYS [Suspect]
     Dosage: 180 ?G, QW
     Route: 058
     Dates: start: 20130824, end: 20130911

REACTIONS (15)
  - Dizziness postural [Unknown]
  - Head injury [Unknown]
  - Fall [Unknown]
  - Anaemia [Unknown]
  - Weight increased [Not Recovered/Not Resolved]
  - Feeling abnormal [Not Recovered/Not Resolved]
  - Influenza like illness [Not Recovered/Not Resolved]
  - Pallor [Recovered/Resolved]
  - Lethargy [Not Recovered/Not Resolved]
  - Injection site erythema [Not Recovered/Not Resolved]
  - Irritability [Not Recovered/Not Resolved]
  - Asthenia [Not Recovered/Not Resolved]
  - Fatigue [Not Recovered/Not Resolved]
  - Anorectal discomfort [Not Recovered/Not Resolved]
  - Nausea [Not Recovered/Not Resolved]
